FAERS Safety Report 7361044-3 (Version None)
Quarter: 2011Q1

REPORT INFORMATION
  Report Type: 
  Country: None (occurrence: None)
  Receive Date: 20110318
  Receipt Date: 20110310
  Transmission Date: 20110831
  Serious: Yes (Other)
  Sender: FDA-Public Use
  Company Number: US-ROCHE-763537

PATIENT
  Sex: Female

DRUGS (6)
  1. BONIVA [Suspect]
     Indication: OSTEOPOROSIS
     Dosage: FORM: PILL
     Route: 048
     Dates: start: 20110111, end: 20110111
  2. ASPIRIN [Concomitant]
     Dosage: DOSE :81 (UNIT NOT PROVIDED)  START DATE:  AFTER 10 MAY 2007
     Route: 048
  3. DIOVAN [Concomitant]
     Dosage: DOSE: 80/12.5 (UNIT UNSPECIFIED)  START DATE: AFTER10 MAY 2007
     Route: 048
  4. FOLIC ACID [Concomitant]
     Dosage: START DATE: AFTER 10 MAY 2007
     Route: 048
  5. RECLAST [Concomitant]
     Dates: start: 20100101
  6. CALCIUM [Concomitant]

REACTIONS (1)
  - THROAT TIGHTNESS [None]
